FAERS Safety Report 9332968 (Version 2)
Quarter: 2013Q2

REPORT INFORMATION
  Report Type: Spontaneous
  Country: CO (occurrence: CO)
  Receive Date: 20130606
  Receipt Date: 20130617
  Transmission Date: 20140414
  Serious: Yes (Disabling)
  Sender: FDA-Public Use
  Company Number: CO-PFIZER INC-2013171148

PATIENT
  Age: 52 Year
  Sex: Female

DRUGS (1)
  1. LOPID [Suspect]
     Indication: BLOOD TRIGLYCERIDES ABNORMAL
     Dosage: 900 MG, ONCE DAILY
     Route: 048
     Dates: start: 20130522, end: 20130525

REACTIONS (2)
  - Dizziness [Recovered/Resolved]
  - Tachycardia [Recovered/Resolved]
